FAERS Safety Report 5714846-0 (Version None)
Quarter: 2008Q2

REPORT INFORMATION
  Report Type: 
  Country: None (occurrence: None)
  Receive Date: 20080423
  Receipt Date: 20070507
  Transmission Date: 20081010
  Serious: No
  Sender: FDA-Public Use
  Company Number: US-BAYER-US-2007-015702

PATIENT
  Age: 80 Year
  Sex: Male
  Weight: 85 kg

DRUGS (7)
  1. LEUKINE [Suspect]
     Indication: MYELODYSPLASTIC SYNDROME
     Route: 058
     Dates: start: 20061024, end: 20061113
  2. LEUKINE [Suspect]
     Route: 058
     Dates: start: 20070327, end: 20070328
  3. VELCADE [Concomitant]
  4. RITUXAN [Concomitant]
  5. SYNTHROID [Concomitant]
     Route: 048
  6. NEXIUM [Concomitant]
     Route: 048
  7. ATENOLOL [Concomitant]
     Route: 048

REACTIONS (1)
  - CHEST PAIN [None]
